FAERS Safety Report 5073435-4 (Version None)
Quarter: 2006Q3

REPORT INFORMATION
  Report Type: 
  Country: None (occurrence: None)
  Receive Date: 20060717
  Receipt Date: 20051102
  Transmission Date: 20061208
  Serious: No
  Sender: FDA-Public Use
  Company Number: 2005002149

PATIENT
  Age: 64 Year
  Sex: Male
  Weight: 69.4003 kg

DRUGS (1)
  1. TARCEVA [Suspect]
     Indication: NON-SMALL CELL LUNG CANCER
     Dosage: 150 MG (QD), ORAL
     Route: 048
     Dates: start: 20050921

REACTIONS (3)
  - ANOREXIA [None]
  - DYSPHAGIA [None]
  - WEIGHT DECREASED [None]
